FAERS Safety Report 8875871 (Version 1)
Quarter: 2012Q4

REPORT INFORMATION
  Report Type: 
  Country: CH (occurrence: CH)
  Receive Date: 20121023
  Receipt Date: 20121023
  Transmission Date: 20130627
  Serious: Yes (Hospitalization)
  Sender: FDA-Public Use
  Company Number: CH-ROCHE-1144880

PATIENT
  Age: 51 Year
  Sex: Male
  Weight: 105 kg

DRUGS (8)
  1. ROCEPHIN [Suspect]
     Indication: PNEUMONIA
     Route: 040
     Dates: start: 20120701, end: 20120703
  2. TAZOBAC [Suspect]
     Indication: PNEUMONIA
     Route: 042
     Dates: start: 20120703, end: 20120715
  3. PANTOZOL [Suspect]
     Indication: PRODUCT USED FOR UNKNOWN INDICATION
     Route: 048
     Dates: start: 2009
  4. ELTROXIN [Concomitant]
     Route: 048
  5. SEROQUEL [Concomitant]
     Indication: SCHIZOPHRENIA, PARANOID TYPE
     Route: 048
  6. SEROQUEL XR [Concomitant]
     Indication: SCHIZOPHRENIA, PARANOID TYPE
     Route: 048
  7. FLUANXOL [Concomitant]
     Indication: SCHIZOPHRENIA, PARANOID TYPE
     Route: 048
  8. ORFIRIL [Concomitant]
     Route: 048

REACTIONS (2)
  - Tubulointerstitial nephritis [Recovered/Resolved]
  - Blood creatinine increased [Recovered/Resolved]
